FAERS Safety Report 13747154 (Version 2)
Quarter: 2020Q1

REPORT INFORMATION
  Report Type: Spontaneous
  Country: US (occurrence: US)
  Receive Date: 20170712
  Receipt Date: 20200320
  Transmission Date: 20200409
  Serious: Yes (Death, Other)
  Sender: FDA-Public Use
  Company Number: US-BRISTOL-MYERS SQUIBB COMPANY-BMS-2017-060217

PATIENT
  Sex: Female

DRUGS (1)
  1. YERVOY [Suspect]
     Active Substance: IPILIMUMAB
     Indication: THYROID CANCER
     Dosage: UNK, Q3WK
     Route: 042
     Dates: start: 201702, end: 2017

REACTIONS (2)
  - Death [Fatal]
  - Intentional product use issue [Unknown]
